FAERS Safety Report 24126224 (Version 1)
Quarter: 2024Q3

REPORT INFORMATION
  Report Type: Spontaneous
  Country: US (occurrence: None)
  Receive Date: 20240721
  Receipt Date: 20240721
  Transmission Date: 20241017
  Serious: Yes (Life-Threatening, Hospitalization, Disabling, Other)
  Sender: Public
  Company Number: None

PATIENT
  Age: 33 Year
  Sex: Female
  Weight: 53.1 kg

DRUGS (4)
  1. METRONIDAZOLE [Suspect]
     Active Substance: METRONIDAZOLE
     Indication: Perioral dermatitis
     Dates: start: 20231231, end: 20240104
  2. KETOTIFEN [Concomitant]
  3. h1 and h2 blockers [Concomitant]
  4. supplement decreased inflammation [Concomitant]

REACTIONS (13)
  - Paraesthesia [None]
  - Small fibre neuropathy [None]
  - Autonomic neuropathy [None]
  - Noninfective encephalitis [None]
  - Insomnia [None]
  - Muscle atrophy [None]
  - Inflammation [None]
  - Ehlers-Danlos syndrome [None]
  - Mast cell activation syndrome [None]
  - Postural orthostatic tachycardia syndrome [None]
  - Impaired work ability [None]
  - Gait inability [None]
  - Mitochondrial cytopathy [None]

NARRATIVE: CASE EVENT DATE: 20231231
